FAERS Safety Report 11958959 (Version 1)
Quarter: 2016Q1

REPORT INFORMATION
  Report Type: Spontaneous
  Country: US (occurrence: US)
  Receive Date: 20160126
  Receipt Date: 20160126
  Transmission Date: 20160526
  Serious: Yes (Other)
  Sender: FDA-Public Use
  Company Number: US-BEH-2016057908

PATIENT
  Sex: Female
  Weight: 116 kg

DRUGS (18)
  1. XANAX [Concomitant]
     Active Substance: ALPRAZOLAM
  2. ZANTAC [Concomitant]
     Active Substance: RANITIDINE HYDROCHLORIDE
  3. ADVAIR HFA [Concomitant]
     Active Substance: FLUTICASONE PROPIONATE\SALMETEROL XINAFOATE
  4. DIPHENHYDRAMINE. [Concomitant]
     Active Substance: DIPHENHYDRAMINE
  5. EPIPEN [Concomitant]
     Active Substance: EPINEPHRINE
  6. SYNTHROID [Concomitant]
     Active Substance: LEVOTHYROXINE SODIUM
  7. ZITHROMAX [Concomitant]
     Active Substance: AZITHROMYCIN DIHYDRATE
  8. IPRATROPIUM-ALBUTEROL [Concomitant]
     Active Substance: ALBUTEROL\IPRATROPIUM
  9. TOPROL XL [Concomitant]
     Active Substance: METOPROLOL SUCCINATE
  10. DALIRESP [Concomitant]
     Active Substance: ROFLUMILAST
  11. HIZENTRA [Suspect]
     Active Substance: HUMAN IMMUNOGLOBULIN G
     Indication: IMMUNODEFICIENCY COMMON VARIABLE
     Route: 058
  12. LMX [Concomitant]
     Active Substance: LIDOCAINE
  13. ZYRTEC [Concomitant]
     Active Substance: CETIRIZINE HYDROCHLORIDE
  14. CELEXA [Concomitant]
     Active Substance: CITALOPRAM HYDROBROMIDE
  15. ACETAMINOPHEN. [Concomitant]
     Active Substance: ACETAMINOPHEN
  16. GENTAMICIN. [Concomitant]
     Active Substance: GENTAMICIN
  17. VENTOLIN [Concomitant]
     Active Substance: ALBUTEROL SULFATE
  18. SPIRIVA [Concomitant]
     Active Substance: TIOTROPIUM BROMIDE MONOHYDRATE

REACTIONS (1)
  - Respiratory tract infection [Not Recovered/Not Resolved]
